FAERS Safety Report 14407454 (Version 1)
Quarter: 2018Q1

REPORT INFORMATION
  Report Type: Spontaneous
  Country: US (occurrence: US)
  Receive Date: 20180116
  Receipt Date: 20180116
  Transmission Date: 20180509
  Serious: Yes (Death)
  Sender: FDA-Public Use
  Company Number: None

PATIENT
  Age: 80 Year
  Sex: Female
  Weight: 87.75 kg

DRUGS (1)
  1. DALIRESP [Suspect]
     Active Substance: ROFLUMILAST
     Indication: CHRONIC OBSTRUCTIVE PULMONARY DISEASE
     Dates: start: 20170105, end: 20170119

REACTIONS (7)
  - Tremor [None]
  - Weight decreased [None]
  - Rash [None]
  - Pneumonia [None]
  - Depression [None]
  - Diarrhoea [None]
  - Middle insomnia [None]

NARRATIVE: CASE EVENT DATE: 20170105
